FAERS Safety Report 4611972-4 (Version None)
Quarter: 2005Q1

REPORT INFORMATION
  Report Type: 
  Country: None (occurrence: None)
  Receive Date: 20050317
  Receipt Date: 20050310
  Transmission Date: 20050727
  Serious: Yes (Other)
  Sender: FDA-Public Use
  Company Number: CH-MERCK-0503CHE00015

PATIENT
  Age: 83 Year
  Sex: Male

DRUGS (17)
  1. COZAAR [Suspect]
     Route: 048
     Dates: start: 20050224, end: 20050225
  2. ENALAPRIL MALEATE [Suspect]
     Route: 048
     Dates: start: 20050223, end: 20050224
  3. CAPTOPRIL [Suspect]
     Route: 048
     Dates: start: 20050216, end: 20050223
  4. PREDNISONE [Suspect]
     Route: 048
     Dates: start: 20050220, end: 20050224
  5. FUROSEMIDE [Suspect]
     Route: 065
     Dates: start: 20050219, end: 20050223
  6. AMOXICILLIN [Suspect]
     Route: 048
     Dates: start: 20050219, end: 20050225
  7. CLARITHROMYCIN [Suspect]
     Route: 048
     Dates: start: 20050221, end: 20050225
  8. PRAVASTATIN SODIUM [Concomitant]
     Route: 065
  9. HEPARIN SODIUM [Concomitant]
     Route: 058
     Dates: start: 20050219
  10. CLOPIDOGREL BISULFATE [Concomitant]
     Route: 048
     Dates: start: 20050220
  11. CLONAZEPAM [Concomitant]
     Route: 048
  12. BUPRENORPHINE HYDROCHLORIDE [Concomitant]
     Route: 060
  13. HYDROXYZINE HYDROCHLORIDE [Concomitant]
     Route: 065
  14. LEVOTHYROXINE SODIUM [Concomitant]
     Route: 048
  15. ESOMEPRAZOLE MAGNESIUM [Concomitant]
     Route: 048
  16. NITROGLYCERIN [Concomitant]
     Route: 061
  17. TORSEMIDE [Concomitant]
     Route: 048

REACTIONS (1)
  - PANCREATITIS [None]
